FAERS Safety Report 5159200-8 (Version None)
Quarter: 2006Q4

REPORT INFORMATION
  Report Type: 
  Country: None (occurrence: None)
  Receive Date: 20061117
  Receipt Date: 20061107
  Transmission Date: 20070319
  Serious: Yes (Hospitalization, Other)
  Sender: FDA-Public Use
  Company Number: HQWYE656107NOV06

PATIENT
  Age: 76 Year
  Sex: Female

DRUGS (8)
  1. CORDARONE [Suspect]
     Indication: ARRHYTHMIA
     Dosage: ORAL
     Route: 048
     Dates: start: 20060719, end: 20060905
  2. CORDARONE [Suspect]
     Indication: ATRIAL FIBRILLATION
     Dosage: ORAL
     Route: 048
     Dates: start: 20060719, end: 20060905
  3. ADANCOR (NICORANDIL, ) [Suspect]
     Indication: ARRHYTHMIA
     Dosage: ORAL
     Route: 048
     Dates: start: 20060719, end: 20060905
  4. ADANCOR (NICORANDIL, ) [Suspect]
     Indication: ATRIAL FIBRILLATION
     Dosage: ORAL
     Route: 048
     Dates: start: 20060719, end: 20060905
  5. COUMADIN [Concomitant]
  6. CRESTOR [Concomitant]
  7. DIAMICRON (GLICLAZIDE) [Concomitant]
  8. ALLOPURINOL [Concomitant]

REACTIONS (3)
  - PHOTOSENSITIVITY REACTION [None]
  - PRURIGO [None]
  - SKIN EXFOLIATION [None]
